FAERS Safety Report 4929582-8 (Version None)
Quarter: 2006Q1

REPORT INFORMATION
  Report Type: 
  Country: None (occurrence: None)
  Receive Date: 20060224
  Receipt Date: 20060216
  Transmission Date: 20060701
  Serious: Yes (Hospitalization, Other)
  Sender: FDA-Public Use
  Company Number: 2006023942

PATIENT
  Age: 64 Year
  Sex: Male
  Weight: 86.1834 kg

DRUGS (3)
  1. NEURONTIN [Suspect]
     Indication: DIABETIC NEUROPATHY
     Dosage: 200 MG (200 MG, 1 IN 1 D), ORAL
     Route: 048
  2. GLUCOTROL [Concomitant]
  3. FLOMAX [Concomitant]

REACTIONS (8)
  - ASPIRATION [None]
  - CHOKING [None]
  - COUGH [None]
  - DYSPHAGIA [None]
  - PHARYNGEAL HYPOAESTHESIA [None]
  - PNEUMONIA ASPIRATION [None]
  - TRANSIENT ISCHAEMIC ATTACK [None]
  - WRONG TECHNIQUE IN DRUG USAGE PROCESS [None]
